FAERS Safety Report 9209583 (Version 1)
Quarter: 2013Q2

REPORT INFORMATION
  Report Type: Spontaneous
  Country: US (occurrence: US)
  Receive Date: 20130404
  Receipt Date: 20130404
  Transmission Date: 20140414
  Serious: Yes (Other)
  Sender: FDA-Public Use
  Company Number: US-BRISTOL-MYERS SQUIBB COMPANY-18723809

PATIENT
  Age: 75 Year
  Sex: Female

DRUGS (1)
  1. ABATACEPT SUBQ INJECTION 125MG/ML [Suspect]
     Dosage: TAKEN FOR 3 MONTHS.
     Dates: start: 20120703

REACTIONS (2)
  - Back disorder [Unknown]
  - Headache [Not Recovered/Not Resolved]
